FAERS Safety Report 14383038 (Version 3)
Quarter: 2018Q1

REPORT INFORMATION
  Report Type: Report from Study
  Country: US (occurrence: US)
  Receive Date: 20180114
  Receipt Date: 20180313
  Transmission Date: 20180509
  Serious: Yes (Death, Other)
  Sender: FDA-Public Use
  Company Number: PHEH2018US001755

PATIENT
  Age: 34 Year
  Sex: Female
  Weight: 85.9 kg

DRUGS (1)
  1. AFINITOR [Suspect]
     Active Substance: EVEROLIMUS
     Indication: PRODUCT USED FOR UNKNOWN INDICATION
     Dosage: 10 MG, QD
     Route: 048
     Dates: start: 20171217

REACTIONS (6)
  - Metastases to liver [Fatal]
  - Metastases to lung [Unknown]
  - Metastases to central nervous system [Unknown]
  - Vaginal haemorrhage [Unknown]
  - Hepatic encephalopathy [Fatal]
  - Pelvic pain [Unknown]

NARRATIVE: CASE EVENT DATE: 20171231
